FAERS Safety Report 5012971-3 (Version None)
Quarter: 2006Q2

REPORT INFORMATION
  Report Type: 
  Country: None (occurrence: None)
  Receive Date: 20060530
  Receipt Date: 20051229
  Transmission Date: 20061013
  Serious: Yes (Other)
  Sender: FDA-Public Use
  Company Number: IT-AVENTIS-200610748GDDC

PATIENT
  Age: 30 Year
  Sex: Female

DRUGS (1)
  1. ARAVA [Suspect]
     Indication: PSORIATIC ARTHROPATHY
     Dosage: DOSE: UNK

REACTIONS (3)
  - ABORTION SPONTANEOUS [None]
  - DRUG EXPOSURE DURING PREGNANCY [None]
  - PREGNANCY [None]
